FAERS Safety Report 12138828 (Version 1)
Quarter: 2016Q1

REPORT INFORMATION
  Report Type: Spontaneous
  Country: FR (occurrence: FR)
  Receive Date: 20160302
  Receipt Date: 20160302
  Transmission Date: 20160526
  Serious: Yes (Other)
  Sender: FDA-Public Use
  Company Number: FR-ELI_LILLY_AND_COMPANY-FR201602006794

PATIENT
  Age: 63 Year
  Sex: Female

DRUGS (10)
  1. PLAVIX [Concomitant]
     Active Substance: CLOPIDOGREL BISULFATE
  2. TRIATEC                            /00116401/ [Concomitant]
     Active Substance: ACETAMINOPHEN\CODEINE PHOSPHATE
  3. HUMALOG [Suspect]
     Active Substance: INSULIN LISPRO
     Indication: TYPE 1 DIABETES MELLITUS
     Dosage: UNK, UNKNOWN
     Route: 058
  4. LEVOTHYROX [Concomitant]
     Active Substance: LEVOTHYROXINE
  5. TAHOR [Concomitant]
     Active Substance: ATORVASTATIN CALCIUM
  6. LANTUS [Suspect]
     Active Substance: INSULIN GLARGINE
     Indication: TYPE 1 DIABETES MELLITUS
     Dosage: UNK, UNKNOWN
     Route: 058
  7. CONTRAMAL [Suspect]
     Active Substance: TRAMADOL HYDROCHLORIDE
     Indication: PERIARTHRITIS
     Dosage: 3 DF, QD
     Route: 048
     Dates: end: 20151213
  8. KEPPRA [Concomitant]
     Active Substance: LEVETIRACETAM
  9. DOLIPRANE [Concomitant]
     Active Substance: ACETAMINOPHEN
  10. SEROPLEX [Concomitant]
     Active Substance: ESCITALOPRAM OXALATE

REACTIONS (3)
  - Clavicle fracture [Recovered/Resolved]
  - Fall [Recovered/Resolved]
  - Hypoglycaemia [Recovered/Resolved]

NARRATIVE: CASE EVENT DATE: 201512
